FAERS Safety Report 6186566-2 (Version None)
Quarter: 2009Q2

REPORT INFORMATION
  Report Type: 
  Country: None (occurrence: None)
  Receive Date: 20090512
  Receipt Date: 20090507
  Transmission Date: 20091009
  Serious: Yes (Other)
  Sender: FDA-Public Use
  Company Number: AU-BRISTOL-MYERS SQUIBB COMPANY-14618565

PATIENT
  Age: 8 Week

DRUGS (1)
  1. SPRYCEL [Suspect]
     Dosage: TAKEN ABOUT 2 YEARS.
     Route: 064
     Dates: start: 20090216, end: 20090320

REACTIONS (1)
  - INTRA-UTERINE DEATH [None]
